FAERS Safety Report 9245677 (Version 2)
Quarter: 2013Q2

REPORT INFORMATION
  Report Type: Spontaneous
  Country: CH (occurrence: CH)
  Receive Date: 20130422
  Receipt Date: 20130426
  Transmission Date: 20140414
  Serious: Yes (Other)
  Sender: FDA-Public Use
  Company Number: CH-PFIZER INC-2013123688

PATIENT
  Age: 41 Year
  Sex: Male
  Weight: 67 kg

DRUGS (6)
  1. PANTOZOL [Suspect]
     Indication: DYSPEPSIA
     Dosage: 40 MG, 2X/DAY
     Route: 048
     Dates: start: 201302, end: 20130207
  2. CEFTRIAXONE SODIUM [Suspect]
     Indication: ENDOCARDITIS BACTERIAL
     Dosage: 2 G, 1X/DAY
     Route: 041
     Dates: start: 20130121, end: 20130220
  3. CIPROFLOXACIN HCL [Suspect]
     Indication: ENDOCARDITIS BACTERIAL
     Dosage: 1 DF, 2X/DAY
     Route: 048
     Dates: start: 20130220, end: 20130227
  4. CIPROFLOXACIN HCL [Suspect]
     Indication: SUBACUTE ENDOCARDITIS
  5. ACETYLSALICYLIC ACID [Suspect]
     Indication: MYOCARDIAL ISCHAEMIA
     Dosage: 100 MG, 1X/DAY
     Route: 048
     Dates: start: 20130116
  6. PHENPROCOUMON [Suspect]
     Indication: HEART VALVE OPERATION
     Dosage: 1 DF, AS NEEDED
     Route: 048
     Dates: start: 2004

REACTIONS (3)
  - Anaemia [Unknown]
  - Leukopenia [Recovered/Resolved]
  - Neutrophil count decreased [Unknown]
